FAERS Safety Report 18168777 (Version 1)
Quarter: 2020Q3

REPORT INFORMATION
  Report Type: Spontaneous
  Country: DE (occurrence: DE)
  Receive Date: 20200819
  Receipt Date: 20200819
  Transmission Date: 20201103
  Serious: Yes (Hospitalization)
  Sender: FDA-Public Use
  Company Number: DE-TEVA-2020-DE-1815469

PATIENT
  Age: 85 Year
  Sex: Male
  Weight: 86 kg

DRUGS (6)
  1. CLOPIDOGREL [Suspect]
     Active Substance: CLOPIDOGREL BISULFATE
     Dosage: 75 MILLIGRAM DAILY; 1?0?0?0
  2. RAMIPRIL. [Concomitant]
     Active Substance: RAMIPRIL
     Dosage: 5 MILLIGRAM DAILY; 1?0?0?0
  3. SIMVASTATIN. [Concomitant]
     Active Substance: SIMVASTATIN
     Dosage: 40 MILLIGRAM DAILY; 0?1?0?0
  4. METOPROLOL. [Concomitant]
     Active Substance: METOPROLOL
     Dosage: 95 MILLIGRAM DAILY; 0?1?0?0
  5. TORASEMID [Concomitant]
     Active Substance: TORSEMIDE
     Dosage: 5 MILLIGRAM DAILY; 1?0?0?0
  6. METHIONINE [Concomitant]
     Active Substance: METHIONINE
     Dosage: 1 DOSAGE FORMS DAILY; 1?0?0?0

REACTIONS (3)
  - Urinary hesitation [Unknown]
  - Haematuria [Unknown]
  - Dysuria [Unknown]
